FAERS Safety Report 5310287-9 (Version None)
Quarter: 2007Q2

REPORT INFORMATION
  Report Type: 
  Country: None (occurrence: None)
  Receive Date: 20070427
  Receipt Date: 20070312
  Transmission Date: 20071010
  Serious: Yes (Hospitalization)
  Sender: FDA-Public Use
  Company Number: US-SANOFI-SYNTHELABO-A03200702397

PATIENT
  Sex: Female

DRUGS (2)
  1. MS CONTIN [Concomitant]
     Indication: DRUG USE FOR UNKNOWN INDICATION
     Dosage: UNK
     Route: 065
     Dates: start: 19980101
  2. AMBIEN [Suspect]
     Indication: INSOMNIA
     Route: 048
     Dates: start: 20040101, end: 20060501

REACTIONS (13)
  - AMNESIA [None]
  - EATING DISORDER [None]
  - FALL [None]
  - JOINT INJURY [None]
  - LIMB INJURY [None]
  - PAIN [None]
  - SKELETAL INJURY [None]
  - SLEEP TALKING [None]
  - SLEEP WALKING [None]
  - TENDON INJURY [None]
  - TRANCE [None]
  - UPPER LIMB FRACTURE [None]
  - WEIGHT INCREASED [None]
